FAERS Safety Report 5201205-2 (Version None)
Quarter: 2007Q1

REPORT INFORMATION
  Report Type: 
  Country: None (occurrence: None)
  Receive Date: 20070108
  Receipt Date: 20061228
  Transmission Date: 20070707
  Serious: Yes (Hospitalization)
  Sender: FDA-Public Use
  Company Number: US-ELI_LILLY_AND_COMPANY-US200612004606

PATIENT
  Age: 33 Year
  Sex: Male

DRUGS (5)
  1. PROZAC [Suspect]
     Indication: DEPRESSION
     Dosage: 40 MG, DAILY (1/D)
  2. PROZAC [Suspect]
     Dosage: 20 MG, DAILY (1/D)
  3. CYMBALTA [Suspect]
     Indication: BACK PAIN
     Dosage: 60 MG, EACH EVENING
     Dates: start: 20060101
  4. CYMBALTA [Suspect]
     Dosage: 30 MG, DAILY (1/D)
  5. MOTRIN [Concomitant]
     Indication: BACK PAIN

REACTIONS (4)
  - ENERGY INCREASED [None]
  - INSOMNIA [None]
  - MENTAL DISORDER [None]
  - SOMNOLENCE [None]
